FAERS Safety Report 7038693-5 (Version None)
Quarter: 2010Q4

REPORT INFORMATION
  Report Type: 
  Country: None (occurrence: None)
  Receive Date: 20101012
  Receipt Date: 20100318
  Transmission Date: 20110411
  Serious: No
  Sender: FDA-Public Use
  Company Number: US-ALLERGAN-1003639US

PATIENT
  Age: 27 Year
  Sex: Female

DRUGS (1)
  1. ELIMITE [Suspect]
     Indication: ACARODERMATITIS
     Dosage: 30 G, SINGLE
     Route: 061
     Dates: start: 20100314, end: 20100314

REACTIONS (3)
  - JOINT STIFFNESS [None]
  - JOINT SWELLING [None]
  - MUSCULOSKELETAL STIFFNESS [None]
